FAERS Safety Report 26074752 (Version 1)
Quarter: 2025Q4

REPORT INFORMATION
  Report Type: Spontaneous
  Country: GB (occurrence: GB)
  Receive Date: 20251121
  Receipt Date: 20251121
  Transmission Date: 20260118
  Serious: Yes (Other)
  Sender: SANDOZ
  Company Number: None

PATIENT
  Age: 78 Year
  Sex: Female
  Weight: 78 kg

DRUGS (3)
  1. AMLODIPINE [Suspect]
     Active Substance: AMLODIPINE BESYLATE
     Indication: Ill-defined disorder
     Dosage: 5 MG, QD
     Route: 048
     Dates: start: 20250901, end: 20251113
  2. FOLIC ACID [Concomitant]
     Active Substance: FOLIC ACID
     Indication: Ill-defined disorder
     Dosage: 1 DF, QD,FOR 12 WEEKS
     Route: 048
     Dates: start: 20250822
  3. RAMIPRIL [Concomitant]
     Active Substance: RAMIPRIL
     Indication: Ill-defined disorder
     Dosage: 1 DF, QD
     Route: 048
     Dates: start: 20251113

REACTIONS (7)
  - Oedema peripheral [Recovered/Resolved]
  - Oedema peripheral [Recovered/Resolved]
  - Muscle spasms [Recovered/Resolved]
  - Abnormal weight gain [Recovered/Resolved]
  - Diarrhoea [Recovered/Resolved]
  - Dyspepsia [Recovered/Resolved]
  - Nocturia [Recovered/Resolved]

NARRATIVE: CASE EVENT DATE: 20251113
